FAERS Safety Report 20208770 (Version 3)
Quarter: 2022Q1

REPORT INFORMATION
  Report Type: Spontaneous
  Country: US (occurrence: None)
  Receive Date: 20211220
  Receipt Date: 20220305
  Transmission Date: 20220423
  Serious: No
  Sender: FDA-Public Use
  Company Number: 2021A882936

PATIENT
  Age: 759 Month
  Sex: Female
  Weight: 88.5 kg

DRUGS (2)
  1. BYDUREON BCISE [Suspect]
     Active Substance: EXENATIDE
     Indication: Blood glucose increased
     Route: 058
     Dates: start: 202111
  2. BYDUREON BCISE [Suspect]
     Active Substance: EXENATIDE
     Indication: Weight control
     Route: 058
     Dates: start: 202111

REACTIONS (3)
  - Skin indentation [Unknown]
  - Off label use [Unknown]
  - Device issue [Unknown]

NARRATIVE: CASE EVENT DATE: 20211101
